FAERS Safety Report 23538773 (Version 1)
Quarter: 2024Q1

REPORT INFORMATION
  Report Type: Spontaneous
  Country: GB (occurrence: GB)
  Receive Date: 20240219
  Receipt Date: 20240219
  Transmission Date: 20240409
  Serious: Yes (Hospitalization)
  Sender: FDA-Public Use
  Company Number: GB-CELLTRION INC.-2024GB003604

PATIENT

DRUGS (10)
  1. ADALIMUMAB [Suspect]
     Active Substance: ADALIMUMAB\ISOPROPYL ALCOHOL
     Indication: Product used for unknown indication
     Dosage: INCREASED TO WEEKLY IN JUNE 2023
     Dates: start: 202108, end: 202309
  2. CHOLECALCIFEROL [Concomitant]
     Active Substance: CHOLECALCIFEROL
     Dosage: 800 IU, QD
  3. SOPROBEC [Concomitant]
     Dosage: 100MCG/DOSE
  4. CHOLECALCIFEROL [Concomitant]
     Active Substance: CHOLECALCIFEROL
  5. FOLIC ACID [Concomitant]
     Active Substance: FOLIC ACID
     Dosage: 5 MG, QD
  6. CITALOPRAM [Concomitant]
     Active Substance: CITALOPRAM HYDROBROMIDE
     Dosage: 20 MG, QD
  7. ESTRADIOL [Concomitant]
     Active Substance: ESTRADIOL
     Dosage: 50 MCG/DOSE//24HOURS
  8. VEDOLIZUMAB [Concomitant]
     Active Substance: VEDOLIZUMAB
     Dosage: 300 MG
  9. HYDROXOCOBALAMIN [Concomitant]
     Active Substance: HYDROXOCOBALAMIN
     Dosage: 1 MG
  10. LEVONORGESTREL [Concomitant]
     Active Substance: LEVONORGESTREL
     Dosage: 7 MCG//24HOURS . USE AS DIRECTED.

REACTIONS (6)
  - Lethargy [Unknown]
  - Dyspnoea [Unknown]
  - Hypersensitivity [Recovered/Resolved]
  - Arthralgia [Unknown]
  - Rash [Unknown]
  - Cough [Unknown]
